FAERS Safety Report 10438151 (Version 1)
Quarter: 2014Q3

REPORT INFORMATION
  Report Type: Spontaneous
  Country: US (occurrence: US)
  Receive Date: 20140908
  Receipt Date: 20140908
  Transmission Date: 20150326
  Serious: No
  Sender: FDA-Public Use
  Company Number: US-BRISTOL-MYERS SQUIBB COMPANY-20558441

PATIENT
  Age: 33 Year
  Sex: Male

DRUGS (10)
  1. ABILIFY [Suspect]
     Active Substance: ARIPIPRAZOLE
     Indication: PSYCHOTIC DISORDER
     Dates: start: 20140310
  2. ABILIFY [Suspect]
     Active Substance: ARIPIPRAZOLE
     Indication: BIPOLAR DISORDER
     Dates: start: 20140310
  3. ABILIFY MAINTENA [Suspect]
     Active Substance: ARIPIPRAZOLE
     Indication: PSYCHOTIC DISORDER
     Route: 030
     Dates: start: 20140310
  4. RISPERDAL [Suspect]
     Active Substance: RISPERIDONE
     Dates: end: 20140310
  5. CYMBALTA [Suspect]
     Active Substance: DULOXETINE HYDROCHLORIDE
     Dates: end: 20140310
  6. VISTARIL [Suspect]
     Active Substance: HYDROXYZINE PAMOATE
     Dates: end: 20140310
  7. ABILIFY MAINTENA [Suspect]
     Active Substance: ARIPIPRAZOLE
     Indication: SCHIZOAFFECTIVE DISORDER
     Route: 030
     Dates: start: 20140310
  8. COGENTIN [Suspect]
     Active Substance: BENZTROPINE MESYLATE
     Dates: end: 20140310
  9. PRILOSEC [Concomitant]
     Active Substance: OMEPRAZOLE MAGNESIUM
  10. ABILIFY MAINTENA [Suspect]
     Active Substance: ARIPIPRAZOLE
     Indication: BIPOLAR DISORDER
     Route: 030
     Dates: start: 20140310

REACTIONS (5)
  - Vomiting [Unknown]
  - Off label use [Unknown]
  - Nausea [Unknown]
  - Cold sweat [Unknown]
  - Decreased appetite [Unknown]

NARRATIVE: CASE EVENT DATE: 201403
